FAERS Safety Report 8457463 (Version 2)
Quarter: 2013Q2

REPORT INFORMATION
  Report Type: Spontaneous
  Country: US (occurrence: US)
  Receive Date: 20120314
  Receipt Date: 20130422
  Transmission Date: 20140414
  Serious: Yes (Hospitalization)
  Sender: FDA-Public Use
  Company Number: US-BAYER-2012-022214

PATIENT
  Age: 34 Year
  Sex: Female

DRUGS (4)
  1. YAZ [Suspect]
     Dosage: UNK
     Dates: start: 2009, end: 20100606
  2. ACETAMINOPHEN [Concomitant]
  3. AZITHROMYCIN [Concomitant]
  4. METHYLPREDNISOLONE [Concomitant]

REACTIONS (10)
  - Transverse sinus thrombosis [None]
  - Intracranial venous sinus thrombosis [None]
  - Cavernous sinus thrombosis [None]
  - Injury [None]
  - Pain [None]
  - General physical health deterioration [None]
  - Anxiety [None]
  - Emotional distress [None]
  - General physical health deterioration [None]
  - Transverse sinus thrombosis [None]
